FAERS Safety Report 4315716-5 (Version None)
Quarter: 2004Q1

REPORT INFORMATION
  Report Type: 
  Country: None (occurrence: None)
  Receive Date: 20040310
  Receipt Date: 20040304
  Transmission Date: 20041129
  Serious: Yes (Hospitalization)
  Sender: FDA-Public Use
  Company Number: 200410452GDS

PATIENT
  Age: 90 Year
  Sex: Male
  Weight: 56 kg

DRUGS (4)
  1. ASPIRIN [Suspect]
     Indication: ANTICOAGULANT THERAPY
     Dosage: 81 MG, TOTAL DAILY
     Dates: start: 20001020
  2. ESTROGEN (FOSFESTROL) (FOSFESTROL) [Suspect]
     Indication: PROSTATE CANCER
     Dosage: 300 MG, TOTAL DAILY
     Dates: start: 20001020
  3. WARFARIN SODIUM [Suspect]
     Indication: PROSTATE CANCER
  4. FUROSEMIDE [Concomitant]

REACTIONS (9)
  - AORTIC VALVE STENOSIS [None]
  - CARDIAC FAILURE [None]
  - CARDIAC VALVE REPLACEMENT COMPLICATION [None]
  - CARDIOMEGALY [None]
  - HAEMATURIA [None]
  - INTRACARDIAC THROMBUS [None]
  - PLEURAL EFFUSION [None]
  - PROSTATE CANCER [None]
  - PULMONARY CONGESTION [None]
